FAERS Safety Report 8417412-1 (Version None)
Quarter: 2012Q2

REPORT INFORMATION
  Report Type: 
  Country: None (occurrence: None)
  Receive Date: 20120606
  Receipt Date: 20120604
  Transmission Date: 20120825
  Serious: Yes (Other)
  Sender: FDA-Public Use
  Company Number: US-PFIZER INC-2012040100

PATIENT
  Sex: Female

DRUGS (3)
  1. CHANTIX [Suspect]
     Dosage: UNK
     Route: 048
     Dates: start: 20120603
  2. CHANTIX [Suspect]
     Indication: SMOKING CESSATION THERAPY
     Dosage: 1 MG, 2X/DAY
     Route: 048
     Dates: start: 20120131, end: 20120401
  3. LEVAQUIN [Suspect]
     Dosage: 500 MG, 1X/DAY
     Dates: start: 20111201

REACTIONS (7)
  - ISCHAEMIC STROKE [None]
  - TRANSIENT ISCHAEMIC ATTACK [None]
  - PAIN [None]
  - ILL-DEFINED DISORDER [None]
  - PNEUMONIA [None]
  - TENDONITIS [None]
  - MALAISE [None]
